FAERS Safety Report 4575430-8 (Version None)
Quarter: 2005Q1

REPORT INFORMATION
  Report Type: 
  Country: None (occurrence: None)
  Receive Date: 20050131
  Receipt Date: 20050131
  Transmission Date: 20050727
  Serious: No
  Sender: FDA-Public Use
  Company Number: None

PATIENT
  Sex: Female
  Weight: 97 kg

DRUGS (8)
  1. CRESTOR [Suspect]
     Indication: RENAL FAILURE ACUTE
     Dosage: 10MG   QD   ORAL
     Route: 048
     Dates: start: 20040115, end: 20041129
  2. IBUPROFEN [Concomitant]
  3. ALTACE [Concomitant]
  4. ZOLOFT [Concomitant]
  5. TRIAMTERENE AND HYDROCHLOROTHIAZIDE [Concomitant]
  6. ADVAIR INHALATION [Concomitant]
  7. NEURONTIN [Concomitant]
  8. FLU VACCINE [Concomitant]

REACTIONS (1)
  - BLOOD CREATINE INCREASED [None]
